FAERS Safety Report 20671026 (Version 1)
Quarter: 2022Q2

REPORT INFORMATION
  Report Type: Spontaneous
  Country: GB (occurrence: GB)
  Receive Date: 20220404
  Receipt Date: 20220404
  Transmission Date: 20220721
  Serious: Yes (Death, Other)
  Sender: FDA-Public Use
  Company Number: None

PATIENT
  Age: 83 Year
  Sex: Female

DRUGS (3)
  1. DILTIAZEM HYDROCHLORIDE [Suspect]
     Active Substance: DILTIAZEM HYDROCHLORIDE
     Indication: Product used for unknown indication
     Route: 065
     Dates: start: 20210327
  2. BISOPROLOL [Concomitant]
     Active Substance: BISOPROLOL
     Indication: Heart rate decreased
     Dates: start: 20210326
  3. BISOPROLOL [Concomitant]
     Active Substance: BISOPROLOL
     Indication: Blood pressure decreased

REACTIONS (3)
  - Death [Fatal]
  - Atrial flutter [Unknown]
  - Atrioventricular block [Unknown]

NARRATIVE: CASE EVENT DATE: 20210327
